FAERS Safety Report 19142180 (Version 2)
Quarter: 2021Q2

REPORT INFORMATION
  Report Type: Spontaneous
  Country: US (occurrence: US)
  Receive Date: 20210415
  Receipt Date: 20210415
  Transmission Date: 20210717
  Serious: No
  Sender: FDA-Public Use
  Company Number: US-GALDERMA-US2021003985

PATIENT
  Age: 47 Year
  Sex: Female

DRUGS (1)
  1. PROACTIV MD ADAPALENE ACNE TREATMENT [Suspect]
     Active Substance: ADAPALENE
     Indication: ACNE
     Dosage: 0.1%
     Route: 061

REACTIONS (5)
  - Skin fissures [Unknown]
  - Inappropriate schedule of product administration [Recovered/Resolved]
  - Rash erythematous [Unknown]
  - Dry skin [Unknown]
  - Overdose [Recovered/Resolved]
